FAERS Safety Report 10076192 (Version 2)
Quarter: 2014Q2

REPORT INFORMATION
  Report Type: Spontaneous
  Country: US (occurrence: None)
  Receive Date: 20140410
  Receipt Date: 20140630
  Transmission Date: 20141212
  Serious: Yes (Hospitalization)
  Sender: FDA-Public Use
  Company Number: UTC-046744

PATIENT
  Age: 42 Year
  Sex: Female

DRUGS (3)
  1. TYVASO [Suspect]
     Indication: PULMONARY HYPERTENSION
     Route: 055
  2. ADCIRCA [Suspect]
     Indication: PULMONARY HYPERTENSION
  3. LETAIRIS [Suspect]
     Indication: PULMONARY HYPERTENSION
     Dates: start: 20121026

REACTIONS (1)
  - Dyspnoea [None]
